FAERS Safety Report 9186119 (Version 1)
Quarter: 2013Q1

REPORT INFORMATION
  Report Type: Spontaneous
  Country: US (occurrence: None)
  Receive Date: 20120628
  Receipt Date: 20120628
  Transmission Date: 20140127
  Serious: Yes (Hospitalization)
  Sender: FDA-Public Use
  Company Number: PHEH2012US000917

PATIENT
  Sex: Female

DRUGS (1)
  1. RECLAST (ZOLEDRONATE) SOLUTION FOR INJECTION [Suspect]
     Indication: OSTEOPOROSIS
     Dosage: ONCE A YEAR
     Route: 042

REACTIONS (1)
  - Renal failure acute [None]
